FAERS Safety Report 17693870 (Version 1)
Quarter: 2020Q2

REPORT INFORMATION
  Report Type: Report from Study
  Country: None (occurrence: US)
  Receive Date: 20200422
  Receipt Date: 20200422
  Transmission Date: 20200714
  Serious: Yes (Other)
  Sender: FDA-Public Use
  Company Number: US-ABBVIE-20P-163-3374213-00

PATIENT
  Sex: Male

DRUGS (1)
  1. IMBRUVICA [Suspect]
     Active Substance: IBRUTINIB
     Indication: EXTRANODAL MARGINAL ZONE B-CELL LYMPHOMA (MALT TYPE)
     Route: 048
     Dates: start: 20190322

REACTIONS (13)
  - Lymphocyte count abnormal [Unknown]
  - Protein total abnormal [Unknown]
  - Red blood cell count abnormal [Unknown]
  - Carcinoembryonic antigen increased [Unknown]
  - Red cell distribution width abnormal [Unknown]
  - Decreased appetite [Unknown]
  - Haemoglobin abnormal [Unknown]
  - Monocyte count abnormal [Unknown]
  - Blood glucose abnormal [Unknown]
  - Blood immunoglobulin G abnormal [Unknown]
  - White blood cell count abnormal [Unknown]
  - Gamma-glutamyltransferase abnormal [Unknown]
  - Weight decreased [Unknown]
